FAERS Safety Report 6866664-8 (Version None)
Quarter: 2010Q2

REPORT INFORMATION
  Report Type: 
  Country: None (occurrence: None)
  Receive Date: 20100603
  Receipt Date: 20100423
  Transmission Date: 20101027
  Serious: Yes (Death)
  Sender: FDA-Public Use
  Company Number: WAES 1004USA00262

PATIENT
  Age: 31 Year
  Sex: Female

DRUGS (3)
  1. STROMECTOL [Suspect]
     Indication: STRONGYLOIDIASIS
     Dosage: 12 MG/DAILY/RECT; 12 MG/DAILY
     Route: 054
     Dates: start: 20090727, end: 20090806
  2. INJ IVOMEC UNK [Suspect]
     Dosage: 200 MICROGM/KG/DAILY/SC
     Route: 058
     Dates: start: 20090706, end: 20090727
  3. ALBENDAZOLE [Concomitant]

REACTIONS (4)
  - DRUG INEFFECTIVE [None]
  - INCORRECT ROUTE OF DRUG ADMINISTRATION [None]
  - OFF LABEL USE [None]
  - STRONGYLOIDIASIS [None]
